FAERS Safety Report 24416025 (Version 1)
Quarter: 2024Q4

REPORT INFORMATION
  Report Type: Spontaneous
  Country: US (occurrence: US)
  Receive Date: 20241009
  Receipt Date: 20241009
  Transmission Date: 20250114
  Serious: Yes (Hospitalization, Other)
  Sender: GRAVITI PHARMACEUTICALS
  Company Number: US-GRAVITIPHARMA-GRA-2409-US-LIT-0481

PATIENT
  Age: 74 Year
  Sex: Female

DRUGS (1)
  1. ATORVASTATIN CALCIUM [Suspect]
     Active Substance: ATORVASTATIN CALCIUM
     Indication: Hyperlipidaemia
     Route: 065

REACTIONS (2)
  - Autoimmune hepatitis [Recovered/Resolved]
  - Drug-induced liver injury [Recovered/Resolved]
